FAERS Safety Report 22040261 (Version 1)
Quarter: 2023Q1

REPORT INFORMATION
  Report Type: Spontaneous
  Country: US (occurrence: US)
  Receive Date: 20230227
  Receipt Date: 20230227
  Transmission Date: 20230418
  Serious: Yes (Other)
  Sender: FDA-Public Use
  Company Number: US-PFIZER INC-202200757520

PATIENT
  Age: 72 Year
  Sex: Female

DRUGS (1)
  1. IBRANCE [Suspect]
     Active Substance: PALBOCICLIB
     Dosage: 100 MG

REACTIONS (6)
  - Hepatic cancer [Unknown]
  - Cholangiocarcinoma [Unknown]
  - Pleural effusion [Unknown]
  - Swelling [Unknown]
  - Mass [Unknown]
  - Product storage error [Unknown]
